FAERS Safety Report 19790096 (Version 2)
Quarter: 2021Q3

REPORT INFORMATION
  Report Type: Report from Study
  Country: US (occurrence: US)
  Receive Date: 20210905
  Receipt Date: 20210909
  Transmission Date: 20211014
  Serious: Yes (Other)
  Sender: FDA-Public Use
  Company Number: US-JNJFOC-20210861928

PATIENT
  Sex: Female
  Weight: 74.1 kg

DRUGS (1)
  1. EPOPROSTENOL SODIUM. [Suspect]
     Active Substance: EPOPROSTENOL SODIUM
     Indication: PULMONARY HYPERTENSION
     Dosage: EXPIRY DATE: 30?SEP?2022
     Route: 042

REACTIONS (1)
  - Diabetes mellitus inadequate control [Unknown]
